FAERS Safety Report 24343335 (Version 1)
Quarter: 2024Q3

REPORT INFORMATION
  Report Type: Spontaneous
  Country: US (occurrence: US)
  Receive Date: 20240920
  Receipt Date: 20240920
  Transmission Date: 20241016
  Serious: Yes (Hospitalization)
  Sender: DR REDDYS
  Company Number: US-DRL-USA-SPO/USA/24/0013521

PATIENT
  Age: 16 Year
  Sex: Male

DRUGS (4)
  1. IBUPROFEN [Suspect]
     Active Substance: IBUPROFEN
     Indication: Pyrexia
  2. IBUPROFEN [Suspect]
     Active Substance: IBUPROFEN
     Indication: Bone pain
  3. IBUPROFEN [Suspect]
     Active Substance: IBUPROFEN
     Indication: Groin pain
  4. IBUPROFEN [Suspect]
     Active Substance: IBUPROFEN
     Indication: Weight bearing difficulty

REACTIONS (1)
  - Drug ineffective for unapproved indication [Unknown]
